FAERS Safety Report 23388657 (Version 2)
Quarter: 2024Q1

REPORT INFORMATION
  Report Type: Spontaneous
  Country: IL (occurrence: IL)
  Receive Date: 20240110
  Receipt Date: 20240119
  Transmission Date: 20240410
  Serious: Yes (Other)
  Sender: FDA-Public Use
  Company Number: IL-002147023-NVSC2024IL004022

PATIENT
  Age: 65 Year
  Sex: Female
  Weight: 79 kg

DRUGS (1)
  1. EXFORGE [Suspect]
     Active Substance: AMLODIPINE BESYLATE\VALSARTAN
     Indication: Product used for unknown indication
     Dosage: 5.80 MG, QD (IN THE EVENINGS)
     Route: 048
     Dates: start: 20150914

REACTIONS (11)
  - Blood pressure fluctuation [Not Recovered/Not Resolved]
  - Therapeutic product effect decreased [Not Recovered/Not Resolved]
  - Drug intolerance [Unknown]
  - Dyspnoea [Unknown]
  - Skin burning sensation [Unknown]
  - Asthenia [Unknown]
  - Cough [Unknown]
  - Tremor [Unknown]
  - Feeling cold [Unknown]
  - Dysphagia [Unknown]
  - Nausea [Unknown]

NARRATIVE: CASE EVENT DATE: 20231220
